FAERS Safety Report 6957243-2 (Version None)
Quarter: 2010Q3

REPORT INFORMATION
  Report Type: 
  Country: None (occurrence: None)
  Receive Date: 20100831
  Receipt Date: 20100817
  Transmission Date: 20110219
  Serious: Yes (Hospitalization)
  Sender: FDA-Public Use
  Company Number: US-ELI_LILLY_AND_COMPANY-US200901002687

PATIENT
  Sex: Male
  Weight: 138.32 kg

DRUGS (10)
  1. HUMALOG [Suspect]
     Indication: TYPE 2 DIABETES MELLITUS
     Dosage: 10 U, 3/D
  2. HUMALOG [Suspect]
     Dosage: 20 U, UNK
  3. HUMULIN N [Suspect]
     Dosage: 75 U, UNK
  4. HUMULIN N [Suspect]
     Dosage: 45 U, 2/D
  5. PROTONIX [Concomitant]
  6. CRESTOR [Concomitant]
     Dosage: 5 MG, DAILY (1/D)
  7. FUROSEMIDE [Concomitant]
  8. METFORMIN HCL [Concomitant]
     Indication: TYPE 2 DIABETES MELLITUS
  9. UROXATRAL [Concomitant]
     Dosage: 10 MG, UNK
  10. CIPRO [Concomitant]

REACTIONS (11)
  - BLOOD GLUCOSE INCREASED [None]
  - BLOOD PRESSURE INCREASED [None]
  - DRUG INEFFECTIVE [None]
  - DYSPNOEA [None]
  - FLUID RETENTION [None]
  - HEART RATE INCREASED [None]
  - HYPERHIDROSIS [None]
  - MALAISE [None]
  - PALPITATIONS [None]
  - WEIGHT DECREASED [None]
  - WEIGHT INCREASED [None]
